FAERS Safety Report 6532285-X (Version None)
Quarter: 2010Q1

REPORT INFORMATION
  Report Type: 
  Country: None (occurrence: None)
  Receive Date: 20100108
  Receipt Date: 20091221
  Transmission Date: 20100710
  Serious: Yes (Hospitalization)
  Sender: FDA-Public Use
  Company Number: PHHY2009CN57005

PATIENT
  Age: 24 Year
  Sex: Male

DRUGS (5)
  1. PARLODEL [Suspect]
     Indication: HORMONE LEVEL ABNORMAL
     Dosage: 0.5 DF, BID
     Route: 048
     Dates: start: 20090803
  2. HUI CHUN TANG NUMBER 3 [Concomitant]
     Dosage: UNK
  3. HUI CHUN ZHUANG YANG CAPSULE NUMBER 2 [Concomitant]
     Dosage: UNK
  4. TONG JING CAPSULE NUMBER 3 [Concomitant]
     Dosage: UNK
  5. HUI CHUN ZHUANG YANG CAPSULE NUMBER 1 [Concomitant]
     Dosage: UNK

REACTIONS (11)
  - CHOLELITHIASIS [None]
  - CHOLESTASIS [None]
  - CHROMATURIA [None]
  - DECREASED APPETITE [None]
  - FATIGUE [None]
  - HEPATITIS [None]
  - NAUSEA [None]
  - PYREXIA [None]
  - SCLERAL DISCOLOURATION [None]
  - VOMITING [None]
  - YELLOW SKIN [None]
